FAERS Safety Report 9861843 (Version 1)
Quarter: 2014Q1

REPORT INFORMATION
  Report Type: Spontaneous
  Country: US (occurrence: US)
  Receive Date: 20140203
  Receipt Date: 20140203
  Transmission Date: 20141002
  Serious: No
  Sender: FDA-Public Use
  Company Number: US-PFIZER INC-2014029748

PATIENT
  Age: 68 Year
  Sex: Female
  Weight: 77.1 kg

DRUGS (2)
  1. LYRICA [Suspect]
     Indication: FIBROMYALGIA
     Dosage: 300 MG, 1X/DAY
     Route: 048
  2. HYDROCODONE [Concomitant]
     Indication: ARTHRITIS
     Dosage: 5 MG, 3X/DAY

REACTIONS (5)
  - Malaise [Recovered/Resolved]
  - Thinking abnormal [Recovered/Resolved]
  - Activities of daily living impaired [Recovered/Resolved]
  - Influenza [Recovered/Resolved]
  - Vitamin B complex deficiency [Recovered/Resolved]
